FAERS Safety Report 8056415-6 (Version None)
Quarter: 2012Q1

REPORT INFORMATION
  Report Type: 
  Country: None (occurrence: None)
  Receive Date: 20120119
  Receipt Date: 20110522
  Transmission Date: 20120608
  Serious: Yes (Hospitalization)
  Sender: FDA-Public Use
  Company Number: US-SANOFI-AVENTIS-2011SA032999

PATIENT
  Age: 70 Year
  Sex: Male
  Weight: 113 kg

DRUGS (12)
  1. SPIRONOLACTONE [Suspect]
     Route: 048
     Dates: start: 20110222, end: 20110418
  2. AMLODIPINE [Concomitant]
     Dates: start: 20101014
  3. BLINDED THERAPY [Suspect]
     Indication: HEPATIC ENCEPHALOPATHY
     Route: 048
     Dates: start: 20110329
  4. WARFARIN SODIUM [Concomitant]
     Dates: start: 20101004
  5. NADOLOL [Concomitant]
     Dates: start: 20101118
  6. SPIRONOLACTONE [Suspect]
     Route: 048
     Dates: start: 20110418, end: 20110425
  7. VITAMIN D [Concomitant]
     Dates: start: 20100615
  8. METFORMIN HCL [Concomitant]
     Dates: start: 20101014
  9. RANITIDINE [Concomitant]
     Dates: start: 20101014
  10. SYNTHROID [Concomitant]
     Dates: start: 20101014
  11. HYDROCORTISONE [Concomitant]
     Dates: start: 20110120
  12. LASIX [Suspect]
     Route: 048
     Dates: start: 20110418, end: 20110425

REACTIONS (6)
  - RENAL FAILURE ACUTE [None]
  - MENTAL STATUS CHANGES [None]
  - CONFUSIONAL STATE [None]
  - FALL [None]
  - GAIT DISTURBANCE [None]
  - HEPATIC ENCEPHALOPATHY [None]
